FAERS Safety Report 26163901 (Version 1)
Quarter: 2025Q4

REPORT INFORMATION
  Report Type: Report from Study
  Country: AU (occurrence: AU)
  Receive Date: 20251216
  Receipt Date: 20251216
  Transmission Date: 20260118
  Serious: Yes (Hospitalization)
  Sender: TAKEDA
  Company Number: AU-TAKEDA-2025TUS111763

PATIENT
  Age: 57 Year
  Sex: Male

DRUGS (2)
  1. VEDOLIZUMAB [Suspect]
     Active Substance: VEDOLIZUMAB
     Indication: Colitis ulcerative
     Dosage: 300 MILLIGRAM
  2. TERBINAFINE [Concomitant]
     Active Substance: TERBINAFINE
     Dosage: UNK

REACTIONS (1)
  - Onychomycosis [Not Recovered/Not Resolved]

NARRATIVE: CASE EVENT DATE: 20241001
